FAERS Safety Report 8121426-9 (Version None)
Quarter: 2012Q1

REPORT INFORMATION
  Report Type: 
  Country: None (occurrence: None)
  Receive Date: 20120206
  Receipt Date: 20120125
  Transmission Date: 20120608
  Serious: Yes (Other)
  Sender: FDA-Public Use
  Company Number: 1000024586

PATIENT

DRUGS (1)
  1. LEXAPRO [Suspect]
     Indication: DEPRESSION
     Dosage: 20 MG (20 MG, 1 IN 1),
     Dates: start: 20110401, end: 20111228

REACTIONS (3)
  - SUPRAVENTRICULAR EXTRASYSTOLES [None]
  - MATERNAL DRUGS AFFECTING FOETUS [None]
  - CAESAREAN SECTION [None]
